FAERS Safety Report 9198906 (Version 2)
Quarter: 2013Q2

REPORT INFORMATION
  Report Type: Spontaneous
  Country: US (occurrence: US)
  Receive Date: 20130329
  Receipt Date: 20130424
  Transmission Date: 20140414
  Serious: Yes (Hospitalization)
  Sender: FDA-Public Use
  Company Number: US-009507513-1303USA013868

PATIENT
  Age: 53 Year
  Sex: Female

DRUGS (1)
  1. HYZAAR [Suspect]
     Dosage: UNK

REACTIONS (3)
  - Hysterectomy [Unknown]
  - Oophorectomy [Unknown]
  - Renin increased [Unknown]
